FAERS Safety Report 9407653 (Version 1)
Quarter: 2013Q3

REPORT INFORMATION
  Report Type: Spontaneous
  Country: US (occurrence: None)
  Receive Date: 20130717
  Receipt Date: 20130717
  Transmission Date: 20140515
  Serious: Yes (Hospitalization)
  Sender: FDA-Public Use
  Company Number: None

PATIENT
  Age: 70 Year
  Sex: Female

DRUGS (1)
  1. ERBITUX [Suspect]
     Indication: COLON CANCER METASTATIC
     Route: 042
     Dates: start: 20130613

REACTIONS (13)
  - Dyspnoea [None]
  - Hypotension [None]
  - Mental status changes [None]
  - Anaphylactic reaction [None]
  - Feeling hot [None]
  - Palpitations [None]
  - Hyperhidrosis [None]
  - Pulse pressure decreased [None]
  - Restlessness [None]
  - Pallor [None]
  - Lethargy [None]
  - Rales [None]
  - Dyspnoea [None]
